FAERS Safety Report 9537568 (Version 2)
Quarter: 2013Q3

REPORT INFORMATION
  Report Type: Report from Study
  Country: AT (occurrence: AT)
  Receive Date: 20130919
  Receipt Date: 20130919
  Transmission Date: 20140515
  Serious: Yes (Life-Threatening, Hospitalization, Other)
  Sender: FDA-Public Use
  Company Number: AT-ABBVIE-11P-009-0882685-00

PATIENT
  Age: 40 Year
  Sex: Female
  Weight: 44 kg

DRUGS (7)
  1. HUMIRA [Suspect]
     Indication: CROHN^S DISEASE
     Route: 058
     Dates: start: 20080311, end: 20080311
  2. HUMIRA [Suspect]
     Dosage: WEEK 2
     Route: 058
  3. HUMIRA [Suspect]
     Route: 058
  4. HUMIRA [Suspect]
     Route: 058
     Dates: start: 20080610, end: 20111018
  5. HUMIRA [Suspect]
     Route: 058
     Dates: start: 20120207
  6. BUDESONIDE [Concomitant]
     Indication: CROHN^S DISEASE
     Dates: start: 20070614
  7. SALOFALK [Concomitant]
     Indication: CROHN^S DISEASE
     Dates: start: 20070723

REACTIONS (4)
  - Intestinal obstruction [Recovered/Resolved]
  - Fistula [Recovered/Resolved]
  - Abscess [Recovered/Resolved]
  - Sepsis [Recovered/Resolved]
